FAERS Safety Report 22165870 (Version 2)
Quarter: 2023Q2

REPORT INFORMATION
  Report Type: Report from Study
  Country: JP (occurrence: JP)
  Receive Date: 20230403
  Receipt Date: 20230503
  Transmission Date: 20230722
  Serious: Yes (Death, Hospitalization)
  Sender: FDA-Public Use
  Company Number: JP-JNJFOC-20230374447

PATIENT
  Age: 77 Year
  Sex: Male
  Weight: 57.5 kg

DRUGS (4)
  1. IMBRUVICA [Suspect]
     Active Substance: IBRUTINIB
     Indication: Chronic lymphocytic leukaemia recurrent
     Route: 048
     Dates: start: 20190515, end: 20190703
  2. PREDNISOLONE [Concomitant]
     Active Substance: PREDNISOLONE
     Indication: Atrial fibrillation
     Route: 048
     Dates: start: 20190828, end: 20220825
  3. PREDNISOLONE [Concomitant]
     Active Substance: PREDNISOLONE
     Indication: Atrial fibrillation
     Route: 048
     Dates: start: 20190605, end: 20190619
  4. ELIQUIS [Concomitant]
     Active Substance: APIXABAN
     Indication: Atrial fibrillation
     Route: 065
     Dates: start: 20190605, end: 20220825

REACTIONS (2)
  - Chronic lymphocytic leukaemia [Fatal]
  - Febrile neutropenia [Recovered/Resolved]

NARRATIVE: CASE EVENT DATE: 20190710
